FAERS Safety Report 13432239 (Version 2)
Quarter: 2020Q3

REPORT INFORMATION
  Report Type: Spontaneous
  Country: US (occurrence: US)
  Receive Date: 20170412
  Receipt Date: 20200731
  Transmission Date: 20201102
  Serious: Yes (Death, Hospitalization)
  Sender: FDA-Public Use
  Company Number: US-JNJFOC-20170304724

PATIENT
  Age: 50 Year
  Sex: Male

DRUGS (1)
  1. XARELTO [Suspect]
     Active Substance: RIVAROXABAN
     Indication: AORTIC ANEURYSM
     Route: 048
     Dates: start: 20140716, end: 20140721

REACTIONS (3)
  - Product use in unapproved indication [Unknown]
  - Haematoma [Recovering/Resolving]
  - Off label use [Unknown]

NARRATIVE: CASE EVENT DATE: 20140716
